FAERS Safety Report 7132576-8 (Version None)
Quarter: 2010Q4

REPORT INFORMATION
  Report Type: 
  Country: None (occurrence: None)
  Receive Date: 20101202
  Receipt Date: 20101123
  Transmission Date: 20110411
  Serious: Yes (Other)
  Sender: FDA-Public Use
  Company Number: TR-NOVOPROD-306331

PATIENT
  Sex: Female
  Weight: 75 kg

DRUGS (2)
  1. ACTRAPID HM PENFILL [Suspect]
     Indication: TYPE 2 DIABETES MELLITUS
     Dosage: 18 IU, QD
     Route: 058
     Dates: start: 20100315, end: 20100904
  2. INSULATARD HM PENFILL [Suspect]
     Indication: TYPE 2 DIABETES MELLITUS
     Dosage: 6 IU, QD
     Route: 058
     Dates: start: 20100315, end: 20100904

REACTIONS (5)
  - CAESAREAN SECTION [None]
  - DRUG EXPOSURE DURING PREGNANCY [None]
  - POLYHYDRAMNIOS [None]
  - PREMATURE LABOUR [None]
  - STILLBIRTH [None]
